FAERS Safety Report 15255803 (Version 4)
Quarter: 2019Q3

REPORT INFORMATION
  Report Type: Report from Study
  Country: ES (occurrence: ES)
  Receive Date: 20180808
  Receipt Date: 20190716
  Transmission Date: 20191004
  Serious: Yes (Other)
  Sender: FDA-Public Use
  Company Number: ES-PFIZER INC-2018310941

PATIENT
  Age: 78 Year
  Sex: Female
  Weight: 71.5 kg

DRUGS (24)
  1. AFLIBERCEPT [Suspect]
     Active Substance: AFLIBERCEPT
     Dosage: 300 MG, EVERY 3 WEEKS
     Route: 041
     Dates: start: 20180618, end: 20180618
  2. 5 FLUORO URACIL [Suspect]
     Active Substance: FLUOROURACIL
     Indication: COLORECTAL CANCER
     Dosage: 4183 MG, EVERY 3 WEEKS
     Route: 041
     Dates: start: 20180508, end: 20180508
  3. AFLIBERCEPT [Suspect]
     Active Substance: AFLIBERCEPT
     Indication: COLORECTAL CANCER
     Dosage: 300 MG, EVERY 3 WEEKS
     Route: 041
     Dates: start: 20180508, end: 20180508
  4. CALCIUM FOLINATE [Suspect]
     Active Substance: LEUCOVORIN CALCIUM
     Dosage: 697 MG, EVERY 3 WEEKS
     Dates: start: 20180509, end: 20180509
  5. AFLIBERCEPT [Suspect]
     Active Substance: AFLIBERCEPT
     Dosage: 300 MG, EVERY 3 WEEKS
     Route: 041
     Dates: start: 20180509, end: 20180509
  6. PARACETAMOL [Concomitant]
     Active Substance: ACETAMINOPHEN
     Indication: PAIN
     Dosage: 2 G, UNK
     Route: 048
  7. METFORMINE HCL [Concomitant]
     Active Substance: METFORMIN HYDROCHLORIDE
     Indication: DIABETES MELLITUS
     Dosage: 850 MG, UNK
     Route: 048
  8. METAMIZOLE [Concomitant]
     Active Substance: METAMIZOLE
     Indication: PAIN
     Dosage: 1725 MG, UNK
     Route: 048
  9. IRINOTECAN HCL [Suspect]
     Active Substance: IRINOTECAN HYDROCHLORIDE
     Dosage: 313 MG, EVERY 3 WEEKS
     Route: 041
     Dates: start: 20180529, end: 20180529
  10. 5 FLUORO URACIL [Suspect]
     Active Substance: FLUOROURACIL
     Dosage: 697 MG, EVERY 3 WEEKS
     Route: 040
     Dates: start: 20180529, end: 20180529
  11. CALCIUM FOLINATE [Suspect]
     Active Substance: LEUCOVORIN CALCIUM
     Dosage: 697 MG, EVERY 3 WEEKS
     Dates: start: 20180618, end: 20180618
  12. 5 FLUORO URACIL [Suspect]
     Active Substance: FLUOROURACIL
     Dosage: 697 MG, EVERY 3 WEEKS
     Route: 040
     Dates: start: 20180508, end: 20180508
  13. CALCIUM FOLINATE [Suspect]
     Active Substance: LEUCOVORIN CALCIUM
     Indication: COLORECTAL CANCER
     Dosage: 697 MG, EVERY 3 WEEKS
     Route: 041
     Dates: start: 20180508, end: 20180508
  14. ZALDIAR [Concomitant]
     Active Substance: ACETAMINOPHEN\TRAMADOL HYDROCHLORIDE
     Indication: PAIN
     Dosage: 37.5 MG, UNK
     Route: 048
  15. 5 FLUORO URACIL [Suspect]
     Active Substance: FLUOROURACIL
     Dosage: 4183 MG, EVERY 3 WEEKS
     Dates: start: 20180509, end: 20180509
  16. 5 FLUORO URACIL [Suspect]
     Active Substance: FLUOROURACIL
     Dosage: 697 MG, EVERY 3 WEEKS
     Route: 040
     Dates: start: 20180509, end: 20180509
  17. 5 FLUORO URACIL [Suspect]
     Active Substance: FLUOROURACIL
     Dosage: 4183 MG, EVERY 3 WEEKS
     Route: 041
     Dates: start: 20180529, end: 20180529
  18. 5 FLUORO URACIL [Suspect]
     Active Substance: FLUOROURACIL
     Dosage: 4183 MG, EVERY 3 WEEKS
     Route: 041
     Dates: start: 20190618, end: 20190618
  19. 5 FLUORO URACIL [Suspect]
     Active Substance: FLUOROURACIL
     Dosage: 697 MG, EVERY 3 WEEKS
     Route: 040
     Dates: start: 20190618, end: 20190618
  20. IRINOTECAN HCL [Suspect]
     Active Substance: IRINOTECAN HYDROCHLORIDE
     Indication: COLORECTAL CANCER
     Dosage: 313 MG,  EVERY 3 WEEKS
     Route: 041
     Dates: start: 20180508, end: 20180508
  21. IRINOTECAN HCL [Suspect]
     Active Substance: IRINOTECAN HYDROCHLORIDE
     Dosage: 313 MG, EVERY 3 WEEKS
     Route: 041
     Dates: start: 20180509, end: 20180509
  22. IRINOTECAN HCL [Suspect]
     Active Substance: IRINOTECAN HYDROCHLORIDE
     Dosage: 313 MG, EVERY 3 WEEKS
     Route: 041
     Dates: start: 20190618, end: 20190618
  23. CALCIUM FOLINATE [Suspect]
     Active Substance: LEUCOVORIN CALCIUM
     Dosage: 697 MG, EVERY 3 WEEKS
     Route: 041
     Dates: start: 20180529, end: 20180529
  24. AFLIBERCEPT [Suspect]
     Active Substance: AFLIBERCEPT
     Dosage: 300 MG, EVERY 3 WEEKS
     Route: 041
     Dates: start: 20180529, end: 20180529

REACTIONS (1)
  - Cerebrovascular accident [Recovered/Resolved]

NARRATIVE: CASE EVENT DATE: 20180615
